FAERS Safety Report 8344145-2 (Version None)
Quarter: 2012Q2

REPORT INFORMATION
  Report Type: 
  Country: None (occurrence: None)
  Receive Date: 20120508
  Receipt Date: 20120427
  Transmission Date: 20120825
  Serious: Yes (Other)
  Sender: FDA-Public Use
  Company Number: PHFR2012GB002613

PATIENT

DRUGS (1)
  1. NILOTINIB [Suspect]

REACTIONS (1)
  - VASCULITIS CEREBRAL [None]
